FAERS Safety Report 6271712-2 (Version None)
Quarter: 2009Q3

REPORT INFORMATION
  Report Type: 
  Country: None (occurrence: None)
  Receive Date: 20090716
  Receipt Date: 20090716
  Transmission Date: 20100115
  Serious: Yes (Other)
  Sender: FDA-Public Use
  Company Number: None

PATIENT
  Sex: Female
  Weight: 51.7101 kg

DRUGS (2)
  1. BUDEPRION XL 150 MG MFG/ TEVA [Suspect]
     Indication: ANXIETY
     Dosage: 1 TABLET 1X DAY BY MOUTH
     Route: 048
  2. BUDEPRION XL 150 MG MFG/ TEVA [Suspect]
     Indication: DEPRESSION
     Dosage: 1 TABLET 1X DAY BY MOUTH
     Route: 048

REACTIONS (3)
  - ANXIETY [None]
  - DEPRESSION [None]
  - FATIGUE [None]
